FAERS Safety Report 18293067 (Version 1)
Quarter: 2020Q3

REPORT INFORMATION
  Report Type: Spontaneous
  Country: US (occurrence: US)
  Receive Date: 20200921
  Receipt Date: 20200921
  Transmission Date: 20201103
  Serious: No
  Sender: FDA-Public Use
  Company Number: US-CATALYST PHARMACEUTICALS, INC-2020CAT00388

PATIENT
  Sex: Male
  Weight: 90.7 kg

DRUGS (1)
  1. FIRDAPSE [Suspect]
     Active Substance: AMIFAMPRIDINE PHOSPHATE
     Indication: ILL-DEFINED DISORDER
     Dosage: UNK, 3X/DAY
     Dates: start: 2020

REACTIONS (4)
  - Malaise [Unknown]
  - Urinary tract infection [Recovering/Resolving]
  - Arthralgia [Not Recovered/Not Resolved]
  - Sciatica [Not Recovered/Not Resolved]

NARRATIVE: CASE EVENT DATE: 2020
